FAERS Safety Report 8855380 (Version 1)
Quarter: 2012Q4

REPORT INFORMATION
  Report Type: 
  Country: US (occurrence: US)
  Receive Date: 20121023
  Receipt Date: 20121023
  Transmission Date: 20130627
  Serious: No
  Sender: FDA-Public Use
  Company Number: US-AMGEN-USASP2012044166

PATIENT
  Sex: Female

DRUGS (6)
  1. ENBREL [Suspect]
     Indication: PRODUCT USED FOR UNKNOWN INDICATION
     Dosage: 50 mg, qwk
     Route: 058
  2. ESTRADIOL [Concomitant]
     Dosage: 0.025 mg, UNK
  3. FOLIC ACID [Concomitant]
     Dosage: UNK
  4. MULTIVITAMINS [Concomitant]
     Dosage: UNK
  5. ISOMETHEPTENE/DCHLORALPHENAZONE/APAP [Concomitant]
     Dosage: UNK
  6. DICHLOR-STAPENOR [Concomitant]
     Dosage: UNK

REACTIONS (6)
  - Muscle spasms [Unknown]
  - Weight increased [Unknown]
  - Injection site bruising [Unknown]
  - Injection site erythema [Recovered/Resolved]
  - Injection site warmth [Unknown]
  - Injection site swelling [Unknown]
